FAERS Safety Report 5162946-9 (Version None)
Quarter: 2006Q4

REPORT INFORMATION
  Report Type: 
  Country: None (occurrence: None)
  Receive Date: 20061201
  Receipt Date: 20060908
  Transmission Date: 20070319
  Serious: Yes (Hospitalization)
  Sender: FDA-Public Use
  Company Number: FR-AMGEN-UK192993

PATIENT
  Sex: Female

DRUGS (1)
  1. ARANESP [Suspect]
     Indication: RENAL FAILURE CHRONIC
     Route: 058
     Dates: start: 20060821

REACTIONS (5)
  - CHOLESTASIS [None]
  - PRURITUS [None]
  - RASH PAPULAR [None]
  - TOXIC SKIN ERUPTION [None]
  - URTICARIA [None]
